FAERS Safety Report 23944057 (Version 1)
Quarter: 2024Q2

REPORT INFORMATION
  Report Type: Spontaneous
  Country: US (occurrence: US)
  Receive Date: 20240606
  Receipt Date: 20240606
  Transmission Date: 20240715
  Serious: No
  Sender: FDA-Public Use
  Company Number: US-TEVA-VS-3205529

PATIENT
  Age: 39 Year
  Sex: Male

DRUGS (1)
  1. AUSTEDO [Suspect]
     Active Substance: DEUTETRABENAZINE
     Indication: Product used for unknown indication
     Dosage: 2 TABLETS OF 12 MG AUSTEDO TWICE A DAY FOR A TOTAL OF 48 MG PER DAY
     Route: 065

REACTIONS (1)
  - Treatment noncompliance [Unknown]
